FAERS Safety Report 23191842 (Version 1)
Quarter: 2023Q4

REPORT INFORMATION
  Report Type: Spontaneous
  Country: US (occurrence: US)
  Receive Date: 20231116
  Receipt Date: 20231116
  Transmission Date: 20240110
  Serious: No
  Sender: FDA-Public Use
  Company Number: US-009507513-2311USA004827

PATIENT

DRUGS (1)
  1. CUBICIN [Suspect]
     Active Substance: DAPTOMYCIN
     Indication: Infection prophylaxis
     Dosage: 9.5 MILLIGRAM/KILOGRAM, 2 DOSES OVER 24 HOURS

REACTIONS (1)
  - Product use in unapproved indication [Unknown]
